FAERS Safety Report 10157433 (Version 1)
Quarter: 2014Q2

REPORT INFORMATION
  Report Type: Spontaneous
  Country: US (occurrence: US)
  Receive Date: 20140507
  Receipt Date: 20140507
  Transmission Date: 20141212
  Serious: Yes (Other)
  Sender: FDA-Public Use
  Company Number: US-PFIZER INC-2014121414

PATIENT
  Age: 75 Year
  Sex: Female
  Weight: 70.3 kg

DRUGS (1)
  1. PREMARIN [Suspect]
     Dosage: 0.625 MG, UNK

REACTIONS (2)
  - Urinary tract infection [Unknown]
  - Vaginal disorder [Unknown]
